FAERS Safety Report 17353516 (Version 3)
Quarter: 2024Q2

REPORT INFORMATION
  Report Type: Spontaneous
  Country: NL (occurrence: NL)
  Receive Date: 20200131
  Receipt Date: 20240626
  Transmission Date: 20240716
  Serious: Yes (Other)
  Sender: FDA-Public Use
  Company Number: NL-MLMSERVICE-20200114-0266795-1

PATIENT
  Age: 48 Year
  Sex: Male

DRUGS (11)
  1. FLUCONAZOLE [Suspect]
     Active Substance: FLUCONAZOLE
     Indication: Prophylaxis
     Dosage: POST-TRANSPLANTATION PROTOCOL, LOW DOSE, 100 MILLIGRAM,ONCE
     Route: 042
  2. CEFTRIAXONE [Suspect]
     Active Substance: CEFTRIAXONE\CEFTRIAXONE SODIUM
     Indication: Spontaneous bacterial peritonitis
     Dosage: 2000 MILLIGRAM,QD
     Route: 042
  3. PIPERACILLIN AND TAZOBACTAM [Suspect]
     Active Substance: PIPERACILLIN SODIUM\TAZOBACTAM SODIUM
     Indication: Evidence based treatment
     Dosage: PIPERACILLIN 4000MG, TAZOBACTAM 500MG, 3 TIMES IN A DAY
     Route: 042
  4. PIPERACILLIN AND TAZOBACTAM [Suspect]
     Active Substance: PIPERACILLIN SODIUM\TAZOBACTAM SODIUM
     Indication: Spontaneous bacterial peritonitis
     Dosage: POST-TRANSPLANTATION PROTOCOL, PIPERACILLIN 4000MG, TAZOBACTAM 500MG, 3 TIMES IN A DAY
     Route: 042
  5. PIPERACILLIN AND TAZOBACTAM [Suspect]
     Active Substance: PIPERACILLIN SODIUM\TAZOBACTAM SODIUM
     Indication: Peritonitis
  6. AMPHOTERICIN B [Suspect]
     Active Substance: AMPHOTERICIN B
     Indication: Infection prophylaxis
     Dosage: POST-TRANSPLANTATION PROTOCOL, LOW DOSE, 0.3 MG/KG,ONCE
     Route: 042
  7. AMPHOTERICIN B [Suspect]
     Active Substance: AMPHOTERICIN B
     Indication: Prophylaxis
     Dosage: SDD REGIMEN CONSISTING OF 2% OF POLYMYXIN B, TOBRAMYCIN AND AMPHOTERICIN B IN A SUSPENSION (0.5 G Q.
     Route: 065
  8. TOBRAMYCIN [Suspect]
     Active Substance: TOBRAMYCIN\TOBRAMYCIN SULFATE
     Indication: Infection prophylaxis
     Dosage: SDD REGIMEN CONSISTING OF 2% OF POLYMYXIN B, TOBRAMYCIN AND AMPHOTERICIN B IN A SUSPENSION (0.5 GRAM
     Route: 065
  9. POLYMYXIN B [Suspect]
     Active Substance: POLYMYXIN B
     Indication: Infection prophylaxis
     Dosage: SDD REGIMEN CONSISTING OF 2% OF POLYMYXIN B, TOBRAMYCIN AND AMPHOTERICIN B IN A SUSPENSION (0.5 GRAM
     Route: 065
  10. BASILIXIMAB [Concomitant]
     Active Substance: BASILIXIMAB
     Indication: Prophylaxis against transplant rejection
     Dosage: ON DAY 0 AND DAY 4 AFTER TRANSPLANTATION, 20 MG PER DAY
     Route: 065
  11. HYDROCORTISONE [Concomitant]
     Active Substance: HYDROCORTISONE\HYDROCORTISONE ACETATE
     Indication: Immunosuppressant drug therapy
     Dosage: 4 MILLIGRAM,1X AN HOUR. CONTINUOUS IV
     Route: 041

REACTIONS (1)
  - Pathogen resistance [Unknown]
